FAERS Safety Report 17652811 (Version 1)
Quarter: 2020Q2

REPORT INFORMATION
  Report Type: Other
  Country: SA (occurrence: SA)
  Receive Date: 20200409
  Receipt Date: 20200409
  Transmission Date: 20200713
  Serious: Yes (Life-Threatening, Hospitalization, Congenital Anomaly)
  Sender: FDA-Public Use
  Company Number: SA-NOSTRUM LABORATORIES, INC.-2082584

PATIENT
  Sex: Female

DRUGS (1)
  1. CARBAMAZEPINE EXTENDED-RELEASE [Suspect]
     Active Substance: CARBAMAZEPINE
     Indication: EPILEPSY
     Route: 048

REACTIONS (2)
  - Congenital anomaly [Unknown]
  - Fallot^s tetralogy [Unknown]
